FAERS Safety Report 10421163 (Version 3)
Quarter: 2014Q3

REPORT INFORMATION
  Report Type: Spontaneous
  Country: BR (occurrence: BR)
  Receive Date: 20140830
  Receipt Date: 20140919
  Transmission Date: 20150326
  Serious: Yes (Hospitalization, Other)
  Sender: FDA-Public Use
  Company Number: BR-AUROBINDO PHARMA GMBH-AUR-APL-2014-06731

PATIENT
  Age: 74 Year
  Sex: Female
  Weight: 71 kg

DRUGS (15)
  1. PANTOPRAZOLE [Suspect]
     Active Substance: PANTOPRAZOLE SODIUM
     Indication: GASTROINTESTINAL DISORDER
     Dosage: UNK
     Route: 048
     Dates: start: 201404
  2. EXFORGE HCT [Suspect]
     Active Substance: AMLODIPINE BESYLATE\HYDROCHLOROTHIAZIDE\VALSARTAN
     Indication: HYPERTENSION
     Dosage: 2 DF, ONCE A DAY
     Route: 048
     Dates: start: 201404, end: 201408
  3. ADDERA D3 [Suspect]
     Active Substance: CHOLECALCIFEROL
     Indication: VITAMIN D DECREASED
     Dosage: 12 GTT  (10 MG), ONCE A DAY,
     Route: 048
     Dates: start: 201404
  4. CARVEDILOL. [Suspect]
     Active Substance: CARVEDILOL
     Indication: PRODUCT USED FOR UNKNOWN INDICATION
     Dosage: 2 DF (25 MG), ONCE A DAY
     Route: 048
     Dates: start: 201404
  5. FLUOXETINE [Suspect]
     Active Substance: FLUOXETINE\FLUOXETINE HYDROCHLORIDE
     Indication: FEELING ABNORMAL
     Dosage: 20 GTT, DAILY
     Route: 048
     Dates: start: 201406
  6. ACETYLSALICYLIC ACID [Suspect]
     Active Substance: ASPIRIN
     Indication: ANTICOAGULANT THERAPY
     Dosage: 1 DF, DAILY
     Route: 048
     Dates: start: 1999
  7. TRYPTANOL                          /00002202/ [Suspect]
     Active Substance: AMITRIPTYLINE
     Indication: CONVULSION PROPHYLAXIS
     Dosage: 1 DF (25 MG), ONCE A DAY
     Route: 065
     Dates: start: 1999
  8. APRESOLIN [Suspect]
     Active Substance: HYDRALAZINE HYDROCHLORIDE
     Indication: HYPERTENSION
     Dosage: 3 DF (50 MG), ONCE A DAY
     Route: 048
  9. RIVOTRIL [Suspect]
     Active Substance: CLONAZEPAM
     Indication: SLEEP DISORDER
     Dosage: 3 GTT (2.5), ONCE A DAY
     Route: 048
  10. METFORMIN TABLETS BP 500MG [Suspect]
     Active Substance: METFORMIN HYDROCHLORIDE
     Indication: DIABETES MELLITUS
     Dosage: 2 DF (500 MG), ONCE A DAY
     Route: 048
     Dates: start: 1999
  11. SIMVASTATIN. [Suspect]
     Active Substance: SIMVASTATIN
     Indication: BLOOD CHOLESTEROL
     Dosage: 1 DF (40 MG), DAILY
     Route: 048
     Dates: start: 201404
  12. HYDRALAZINE [Suspect]
     Active Substance: HYDRALAZINE HYDROCHLORIDE
     Indication: PRODUCT USED FOR UNKNOWN INDICATION
     Dosage: UNK
     Route: 065
  13. MONOPRIL [Suspect]
     Active Substance: FOSINOPRIL SODIUM
     Indication: PRODUCT USED FOR UNKNOWN INDICATION
     Route: 065
  14. SPIRONOLACTONE. [Suspect]
     Active Substance: SPIRONOLACTONE
     Indication: PRODUCT USED FOR UNKNOWN INDICATION
     Dosage: 1 DF, ONCE A DAY
     Route: 048
     Dates: start: 201404
  15. DAFLON                             /00426001/ [Suspect]
     Active Substance: DIOSMIN
     Indication: OSTEOARTHRITIS
     Dosage: 2 DF (500 MG), ONCE A DAY
     Route: 048
     Dates: start: 201404

REACTIONS (12)
  - Decreased appetite [Recovering/Resolving]
  - Angina pectoris [Unknown]
  - Infarction [Unknown]
  - Haemoglobin decreased [Unknown]
  - Somnolence [Recovering/Resolving]
  - Haematocrit decreased [Unknown]
  - Ageusia [Recovering/Resolving]
  - Blood pressure decreased [Recovering/Resolving]
  - Red blood cell count decreased [Unknown]
  - Back pain [Unknown]
  - Glycosylated haemoglobin increased [Unknown]
  - Weight decreased [Recovering/Resolving]

NARRATIVE: CASE EVENT DATE: 201404
